FAERS Safety Report 25346836 (Version 1)
Quarter: 2025Q2

REPORT INFORMATION
  Report Type: Spontaneous
  Country: JP (occurrence: JP)
  Receive Date: 20250522
  Receipt Date: 20250522
  Transmission Date: 20250717
  Serious: Yes (Other)
  Sender: MERCK SHARP & DOHME LLC
  Company Number: JP-009507513-2287481

PATIENT
  Age: 73 Year
  Sex: Male

DRUGS (3)
  1. KEYTRUDA [Suspect]
     Active Substance: PEMBROLIZUMAB
     Indication: Lung squamous cell carcinoma stage III
     Route: 041
     Dates: start: 202501, end: 202504
  2. CISPLATIN [Concomitant]
     Active Substance: CISPLATIN
     Dates: start: 202501, end: 202504
  3. GEM [Concomitant]
     Dates: start: 202501, end: 202504

REACTIONS (1)
  - Upper gastrointestinal haemorrhage [Unknown]
